FAERS Safety Report 4346918-X (Version None)
Quarter: 2004Q1

REPORT INFORMATION
  Report Type: 
  Country: None (occurrence: None)
  Receive Date: 20040329
  Receipt Date: 20031216
  Transmission Date: 20041129
  Serious: No
  Sender: FDA-Public Use
  Company Number: USA031254863

PATIENT
  Age: 66 Year
  Sex: Male
  Weight: 64 kg

DRUGS (3)
  1. STRATTERA [Suspect]
     Indication: SLEEP APNOEA SYNDROME
     Dosage: 40 MG/DAY
  2. ZOLOFT 9SERTRALINE HYDROCHLORIDE) [Concomitant]
  3. ELAVIL [Concomitant]

REACTIONS (3)
  - AGGRESSION [None]
  - ANXIETY [None]
  - FEELING ABNORMAL [None]
